FAERS Safety Report 14709830 (Version 1)
Quarter: 2018Q2

REPORT INFORMATION
  Report Type: Spontaneous
  Country: ES (occurrence: ES)
  Receive Date: 20180403
  Receipt Date: 20180403
  Transmission Date: 20180711
  Serious: Yes (Hospitalization, Other)
  Sender: FDA-Public Use
  Company Number: ES-SEBELA IRELAND LIMITED-2018SEB00074

PATIENT
  Age: 59 Year
  Sex: Female

DRUGS (1)
  1. AZATHIOPRINE. [Suspect]
     Active Substance: AZATHIOPRINE
     Indication: CROHN^S DISEASE
     Dosage: UNK
     Route: 065
     Dates: start: 201608

REACTIONS (4)
  - Hyperlactacidaemia [Recovered/Resolved]
  - Anaemia [Recovered/Resolved]
  - Gastric disorder [Recovered/Resolved]
  - Shock [Recovered/Resolved]
